APPROVED DRUG PRODUCT: TERIPARATIDE
Active Ingredient: TERIPARATIDE
Strength: 0.56MG/2.24ML (0.25MG/ML)
Dosage Form/Route: SOLUTION;SUBCUTANEOUS
Application: A211097 | Product #001 | TE Code: AP
Applicant: APOTEX INC
Approved: Nov 16, 2023 | RLD: No | RS: No | Type: RX